FAERS Safety Report 23847562 (Version 1)
Quarter: 2024Q2

REPORT INFORMATION
  Report Type: Spontaneous
  Country: PK (occurrence: PK)
  Receive Date: 20240513
  Receipt Date: 20240513
  Transmission Date: 20240716
  Serious: Yes (Other)
  Sender: FDA-Public Use
  Company Number: PK-STRIDES ARCOLAB LIMITED-2024SP005475

PATIENT
  Age: 18 Month
  Sex: Female

DRUGS (4)
  1. LEVETIRACETAM [Suspect]
     Active Substance: LEVETIRACETAM
     Indication: Seizure
     Dosage: 60 MILLIGRAM/KILOGRAM, QD (PER DAY)
     Route: 065
  2. VIGABATRIN [Suspect]
     Active Substance: VIGABATRIN
     Indication: Seizure
     Dosage: UNK
     Route: 065
  3. CLONAZEPAM [Suspect]
     Active Substance: CLONAZEPAM
     Indication: Seizure
     Dosage: UNK
     Route: 065
  4. ACTH [Concomitant]
     Active Substance: CORTICOTROPIN
     Indication: Evidence based treatment
     Dosage: 10 INTERNATIONAL UNIT/KILOGRAM, QD
     Route: 065

REACTIONS (1)
  - Drug resistance [Unknown]
